FAERS Safety Report 8244768-5 (Version None)
Quarter: 2012Q1

REPORT INFORMATION
  Report Type: 
  Country: None (occurrence: None)
  Receive Date: 20120329
  Receipt Date: 20110324
  Transmission Date: 20120608
  Serious: No
  Sender: FDA-Public Use
  Company Number: US-MYLANLABS-2011S1006412

PATIENT
  Age: 81 Year
  Sex: Male

DRUGS (7)
  1. CELEBREX [Concomitant]
     Indication: ARTHRITIS
  2. DOXAZOSIN MESYLATE [Concomitant]
  3. BENAZEPRIL HYDROCHLORIDE [Concomitant]
     Indication: BLOOD PRESSURE INCREASED
  4. FUROSEMIDE [Concomitant]
     Indication: BLOOD PRESSURE INCREASED
  5. LIPITOR [Concomitant]
     Indication: BLOOD CHOLESTEROL INCREASED
  6. FENTANYL-100 [Suspect]
     Indication: BACK PAIN
     Dosage: Q72HR
     Route: 062
     Dates: start: 20110311
  7. METOPROLOL SUCCINATE [Concomitant]
     Indication: BLOOD PRESSURE INCREASED

REACTIONS (3)
  - BACK PAIN [None]
  - DRUG WITHDRAWAL SYNDROME [None]
  - DRUG EFFECT DECREASED [None]
